FAERS Safety Report 8565488-3 (Version None)
Quarter: 2012Q3

REPORT INFORMATION
  Report Type: 
  Country: None (occurrence: None)
  Receive Date: 20120724
  Receipt Date: 20120717
  Transmission Date: 20120928
  Serious: Yes (Death)
  Sender: FDA-Public Use
  Company Number: DSA_58520_2012

PATIENT
  Sex: Female

DRUGS (1)
  1. XENAZINE [Suspect]
     Indication: HUNTINGTON'S DISEASE
     Dosage: 12.5 MG TABLET; TWO TABLETS AT 8:30 AM, TWO TABLETS AT 1 PM, AND ONE TABLET AT 6 PM, ORAL
     Route: 048

REACTIONS (1)
  - DEATH [None]
